FAERS Safety Report 23651834 (Version 1)
Quarter: 2024Q1

REPORT INFORMATION
  Report Type: Spontaneous
  Country: CN (occurrence: CN)
  Receive Date: 20240320
  Receipt Date: 20240320
  Transmission Date: 20240410
  Serious: Yes (Hospitalization, Other)
  Sender: FDA-Public Use
  Company Number: CN-SUN PHARMACEUTICAL INDUSTRIES LTD-2024R1-437001

PATIENT
  Age: 17 Year
  Sex: Female

DRUGS (3)
  1. LITHIUM [Suspect]
     Active Substance: LITHIUM
     Indication: Bipolar I disorder
     Dosage: 500 MILLIGRAM, BID
     Route: 065
  2. PALIPERIDONE [Suspect]
     Active Substance: PALIPERIDONE
     Indication: Bipolar I disorder
     Dosage: 9 MILLIGRAM, DAILY
     Route: 065
  3. PALIPERIDONE [Suspect]
     Active Substance: PALIPERIDONE
     Dosage: 6 MILLIGRAM, DAILY
     Route: 065

REACTIONS (4)
  - Hypothyroidism [Recovered/Resolved]
  - Sinus disorder [Recovered/Resolved]
  - Sinus bradycardia [Recovered/Resolved]
  - Sinus arrest [Recovered/Resolved]
